FAERS Safety Report 9055812 (Version 1)
Quarter: 2013Q1

REPORT INFORMATION
  Report Type: Spontaneous
  Country: US (occurrence: US)
  Receive Date: 20130206
  Receipt Date: 20130206
  Transmission Date: 20140127
  Serious: Yes (Hospitalization, Other)
  Sender: FDA-Public Use
  Company Number: CHPA2013US001871

PATIENT
  Age: 80 Year
  Sex: Female

DRUGS (12)
  1. MAALOX TOTAL RELIEF [Suspect]
     Indication: GASTROOESOPHAGEAL REFLUX DISEASE
     Dosage: UNK UNK, PRN
     Route: 048
  2. VITAMIN D3 [Concomitant]
  3. VITAMIIN C [Concomitant]
     Dosage: 1 DF, Q48H
  4. TIMOLOL [Concomitant]
     Indication: GLAUCOMA
     Dosage: 1 DF, BID
  5. XALATAN [Concomitant]
     Dosage: UNK, QD
  6. CYMBALTA [Concomitant]
     Dosage: UNK, QD
  7. CITRACAL [Concomitant]
     Dosage: UNK, BID
  8. LOSARTAN [Concomitant]
     Indication: BLOOD PRESSURE
  9. POTASSIUM [Concomitant]
  10. BETA CAROTENE [Concomitant]
  11. FOLIC ACID [Concomitant]
  12. CLARITIN [Concomitant]
     Indication: HYPERSENSITIVITY

REACTIONS (13)
  - Fall [Recovered/Resolved]
  - Concussion [Recovered/Resolved]
  - Intervertebral disc protrusion [Recovered/Resolved]
  - Pain [Recovered/Resolved]
  - Neuropathy peripheral [Not Recovered/Not Resolved]
  - Dyspepsia [Not Recovered/Not Resolved]
  - Eating disorder [Not Recovered/Not Resolved]
  - Chest pain [Not Recovered/Not Resolved]
  - Activities of daily living impaired [Unknown]
  - Local swelling [Recovered/Resolved]
  - Walking aid user [Not Recovered/Not Resolved]
  - Dysstasia [Not Recovered/Not Resolved]
  - Haemorrhage [Recovered/Resolved]
